FAERS Safety Report 24097667 (Version 1)
Quarter: 2024Q3

REPORT INFORMATION
  Report Type: Spontaneous
  Country: US (occurrence: None)
  Receive Date: 20240715
  Receipt Date: 20240715
  Transmission Date: 20241017
  Serious: Yes (Other)
  Sender: Public
  Company Number: None

PATIENT
  Age: 65 Year
  Sex: Male
  Weight: 75.6 kg

DRUGS (11)
  1. GABAPENTIN [Suspect]
     Active Substance: GABAPENTIN
     Indication: Paraesthesia
     Dosage: OTHER QUANTITY : 90 CAPSULE(S);?FREQUENCY : EVERY 6 HOURS;?
     Route: 048
     Dates: start: 20240624, end: 20240715
  2. GABAPENTIN [Suspect]
     Active Substance: GABAPENTIN
     Indication: Hypoaesthesia
  3. GABAPENTIN [Suspect]
     Active Substance: GABAPENTIN
     Indication: Intervertebral disc protrusion
  4. GABAPENTIN [Concomitant]
     Active Substance: GABAPENTIN
  5. RYBELSUS [Concomitant]
     Active Substance: SEMAGLUTIDE
  6. PRAVASTATIN SODIUM [Concomitant]
     Active Substance: PRAVASTATIN SODIUM
  7. LOSARTAN [Concomitant]
     Active Substance: LOSARTAN
  8. VASCEPA [Concomitant]
     Active Substance: ICOSAPENT ETHYL
  9. ALLEGRA [Concomitant]
     Active Substance: FEXOFENADINE HYDROCHLORIDE
  10. Baby aspiran [Concomitant]
  11. FLONASE [Concomitant]
     Active Substance: FLUTICASONE PROPIONATE

REACTIONS (6)
  - Paraesthesia [None]
  - Dizziness [None]
  - Dyspnoea [None]
  - Dyspnoea [None]
  - Aphasia [None]
  - Paralysis [None]

NARRATIVE: CASE EVENT DATE: 20240715
